FAERS Safety Report 9690876 (Version 1)
Quarter: 2013Q4

REPORT INFORMATION
  Report Type: Spontaneous
  Country: US (occurrence: US)
  Receive Date: 20131115
  Receipt Date: 20131115
  Transmission Date: 20140711
  Serious: Yes (Other)
  Sender: FDA-Public Use
  Company Number: US-UCBSA-103020

PATIENT
  Sex: Female

DRUGS (4)
  1. VIMPAT [Suspect]
     Indication: CONVULSION
  2. KEPPRA [Suspect]
     Indication: CONVULSION
     Dosage: 750 MG TWO (TWICE DAILY)
  3. DEPAKOTE [Concomitant]
  4. PLAVIX [Concomitant]
     Dosage: 75 MG

REACTIONS (2)
  - Hemianopia homonymous [Not Recovered/Not Resolved]
  - Hemiparesis [Not Recovered/Not Resolved]
